FAERS Safety Report 4780935-0 (Version None)
Quarter: 2005Q3

REPORT INFORMATION
  Report Type: 
  Country: None (occurrence: None)
  Receive Date: 20050927
  Receipt Date: 20050927
  Transmission Date: 20060218
  Serious: Yes (Hospitalization)
  Sender: FDA-Public Use
  Company Number: None

PATIENT
  Age: 30 Year
  Sex: Female
  Weight: 90.7194 kg

DRUGS (2)
  1. BUTORPHANOL 4MG/2ML BEDFORD LABS [Suspect]
     Indication: PAIN
     Dosage: 2 MG ONE TIME IV BOLUS
     Route: 040
     Dates: start: 20050924, end: 20050924
  2. RANITIDINE [Concomitant]

REACTIONS (1)
  - GRAND MAL CONVULSION [None]
